FAERS Safety Report 5399188-8 (Version None)
Quarter: 2007Q3

REPORT INFORMATION
  Report Type: 
  Country: None (occurrence: None)
  Receive Date: 20070727
  Receipt Date: 20070723
  Transmission Date: 20080115
  Serious: Yes (Life-Threatening)
  Sender: FDA-Public Use
  Company Number: US-ASTRAZENECA-2007UW17779

PATIENT
  Age: 54 Year
  Sex: Female

DRUGS (4)
  1. SEROQUEL [Suspect]
     Route: 048
     Dates: end: 20070719
  2. REMERON [Suspect]
     Dates: end: 20070719
  3. XANAX [Suspect]
     Dates: end: 20070719
  4. GLUCOPHAGE [Concomitant]

REACTIONS (1)
  - ATRIOVENTRICULAR BLOCK FIRST DEGREE [None]
